FAERS Safety Report 13747313 (Version 2)
Quarter: 2017Q3

REPORT INFORMATION
  Report Type: Spontaneous
  Country: US (occurrence: US)
  Receive Date: 20170712
  Receipt Date: 20170901
  Transmission Date: 20171127
  Serious: Yes (Other)
  Sender: FDA-Public Use
  Company Number: US-SA-2017SA124645

PATIENT
  Age: 78 Year
  Sex: Male

DRUGS (2)
  1. DULCOLAX (BISACODYL) [Suspect]
     Active Substance: BISACODYL
     Indication: CONSTIPATION
     Route: 048
  2. DULCOLAX (BISACODYL) [Suspect]
     Active Substance: BISACODYL
     Indication: CONSTIPATION
     Dosage: DOSAGE-10 MG?EXPIRY DATE- DEC-UNK
     Route: 054
     Dates: start: 20170702, end: 20170702

REACTIONS (7)
  - Flatulence [Unknown]
  - Haemorrhoidal haemorrhage [Unknown]
  - Limb operation [Unknown]
  - Abnormal faeces [Recovering/Resolving]
  - Therapeutic response decreased [Unknown]
  - Haemorrhoids [Unknown]
  - Anorectal discomfort [Unknown]

NARRATIVE: CASE EVENT DATE: 201707
